FAERS Safety Report 19166169 (Version 1)
Quarter: 2021Q2

REPORT INFORMATION
  Report Type: Other
  Country: IT (occurrence: IT)
  Receive Date: 20210422
  Receipt Date: 20210422
  Transmission Date: 20210717
  Serious: Yes (Other)
  Sender: FDA-Public Use
  Company Number: IT-CELLTRION INC.-2019IT023920

PATIENT

DRUGS (9)
  1. LYRICA [Concomitant]
     Active Substance: PREGABALIN
     Dosage: ONGOING = CHECKED
     Dates: start: 20171011
  2. TRASTUZUMAB EMTANSINE [Suspect]
     Active Substance: ADO-TRASTUZUMAB EMTANSINE
     Indication: HER2 POSITIVE BREAST CANCER
     Dosage: 230 MG, EVERY 3 WEEKS, ON 09/JAN/2019, RECEIVED MOST RECENT DOSE
     Route: 042
     Dates: start: 20180926
  3. TRASTUZUMAB (UNKNOWN) [Suspect]
     Active Substance: TRASTUZUMAB
     Indication: HER2 POSITIVE BREAST CANCER
     Dosage: 396 MG, EVERY 3 WEEKS, MOST RECENT DOSE PRIOR TO THE EVENT: 10/NOV/2017
     Route: 042
     Dates: start: 20170531, end: 20180828
  4. PACLITAXEL. [Suspect]
     Active Substance: PACLITAXEL
     Indication: HER2 POSITIVE BREAST CANCER
     Dosage: 140 MG Q 1 WEEK, MOST RECENT DOSE PRIOR TO THE EVENT: 18/OCT/2017
     Route: 042
     Dates: start: 20170607, end: 20170614
  5. RANITIDINE. [Concomitant]
     Active Substance: RANITIDINE
     Dosage: ONGOING = CHECKED
     Dates: start: 20180926
  6. CHLORPHENIRAMINE MALEATE. [Concomitant]
     Active Substance: CHLORPHENIRAMINE MALEATE
     Dosage: ONGOING = CHECKED
     Dates: start: 20180926
  7. GRANISETRONE [Concomitant]
     Dosage: ONGOING = CHECKED
     Dates: start: 20180926
  8. DESAMETASONE [Concomitant]
     Active Substance: DEXAMETHASONE
     Dosage: ONGOING = CHECKED
     Dates: start: 20180926
  9. PERTUZUMAB. [Suspect]
     Active Substance: PERTUZUMAB
     Indication: HER2 POSITIVE BREAST CANCER
     Dosage: 840 MG, EVERY 3 WEEKS, MOST RECENT DOSE PRIOR TO THE EVENT: 05/JUL/2017
     Route: 042
     Dates: start: 20170607

REACTIONS (2)
  - Underdose [Unknown]
  - Neuropathy peripheral [Recovered/Resolved]

NARRATIVE: CASE EVENT DATE: 20190109
